FAERS Safety Report 5893633-7 (Version None)
Quarter: 2008Q3

REPORT INFORMATION
  Report Type: 
  Country: None (occurrence: None)
  Receive Date: 20080923
  Receipt Date: 20070926
  Transmission Date: 20090109
  Serious: No
  Sender: FDA-Public Use
  Company Number: US-ASTRAZENECA-2007UW22506

PATIENT
  Age: 38 Year
  Sex: Male

DRUGS (6)
  1. SEROQUEL [Suspect]
     Indication: ANXIETY
     Route: 048
     Dates: start: 20070924, end: 20070924
  2. SEROQUEL [Suspect]
     Dosage: ONCE OR TWICE A DAY FOR 8 MONTHS
     Route: 048
     Dates: start: 20070101
  3. TOPROL-XL [Concomitant]
  4. PROTONIX [Concomitant]
  5. ATIVAN [Concomitant]
  6. PHENERGAN HCL [Concomitant]

REACTIONS (6)
  - COLITIS [None]
  - DIVERTICULITIS [None]
  - MEMORY IMPAIRMENT [None]
  - NAUSEA [None]
  - SLEEP TALKING [None]
  - SOMNAMBULISM [None]
